FAERS Safety Report 7204727-8 (Version None)
Quarter: 2010Q4

REPORT INFORMATION
  Report Type: 
  Country: None (occurrence: None)
  Receive Date: 20101217
  Receipt Date: 20101203
  Transmission Date: 20110411
  Serious: Yes (Other)
  Sender: FDA-Public Use
  Company Number: 023403

PATIENT
  Sex: Female
  Weight: 96.1 kg

DRUGS (7)
  1. LACOSAMIDE [Suspect]
     Indication: CONVULSION
     Dosage: (200 MG BID ORAL)
     Route: 048
     Dates: start: 20090101
  2. DEPAKOTE [Concomitant]
  3. LEVETIRACETAM [Concomitant]
  4. ZONEGRAN [Concomitant]
  5. ATIVAN [Concomitant]
  6. DARVOCET [Concomitant]
  7. GENOTROPIN [Concomitant]

REACTIONS (13)
  - BLOOD PRESSURE INCREASED [None]
  - CONCUSSION [None]
  - CONTUSION [None]
  - CONVULSION [None]
  - DEHYDRATION [None]
  - DIPLOPIA [None]
  - DIZZINESS [None]
  - FALL [None]
  - HEADACHE [None]
  - HYPOAESTHESIA [None]
  - LOSS OF CONSCIOUSNESS [None]
  - NAUSEA [None]
  - VISION BLURRED [None]
